FAERS Safety Report 16362792 (Version 1)
Quarter: 2019Q2

REPORT INFORMATION
  Report Type: Report from Study
  Country: ES (occurrence: ES)
  Receive Date: 20190528
  Receipt Date: 20190528
  Transmission Date: 20190711
  Serious: Yes (Death, Hospitalization, Disabling)
  Sender: FDA-Public Use
  Company Number: ES-AMGEN-ESPNI2019077969

PATIENT
  Age: 86 Year
  Weight: 66.6 kg

DRUGS (10)
  1. BISOPROLOL [Concomitant]
     Active Substance: BISOPROLOL
     Dosage: 2.5 MILLIGRAM
     Route: 048
     Dates: start: 20141217, end: 20190513
  2. FERIV [Concomitant]
     Dosage: 1 UNK
     Route: 042
     Dates: start: 20180414, end: 20190511
  3. ACIDO FOLICO ASPOL [Concomitant]
     Dosage: 10 MILLIGRAM
     Route: 048
     Dates: start: 20180630, end: 20190507
  4. ETELCALCETIDE [Suspect]
     Active Substance: ETELCALCETIDE
     Indication: HYPERPARATHYROIDISM SECONDARY
     Dosage: 5 MILLIGRAM
     Route: 042
     Dates: start: 20180630
  5. ESOMEPRAZOL [ESOMEPRAZOLE] [Concomitant]
     Dosage: 40 MILLIGRAM
     Route: 048
     Dates: start: 20161014, end: 20190514
  6. OPTOVITE B12 [Concomitant]
     Active Substance: CYANOCOBALAMIN
     Dosage: 1 UNK
     Route: 042
     Dates: start: 20180630, end: 20190430
  7. MIRTAZAPINA [Concomitant]
     Active Substance: MIRTAZAPINE
     Dosage: 15 MILLIGRAM
     Route: 048
     Dates: start: 20180419, end: 20190514
  8. MIRCERA [Concomitant]
     Active Substance: METHOXY POLYETHYLENE GLYCOL-EPOETIN BETA
     Dosage: 200 MILLIGRAM
     Route: 042
     Dates: start: 20150904, end: 20190511
  9. ZEMPLAR [Concomitant]
     Active Substance: PARICALCITOL
     Dosage: 1.5 UNK
     Route: 042
     Dates: start: 20190215, end: 20190511
  10. PARACETAMOL [Concomitant]
     Active Substance: ACETAMINOPHEN
     Dosage: 1 GRAM
     Route: 042
     Dates: start: 20181006, end: 20190514

REACTIONS (3)
  - Intestinal ischaemia [Fatal]
  - Lower gastrointestinal haemorrhage [Recovered/Resolved]
  - Foot fracture [Recovered/Resolved]

NARRATIVE: CASE EVENT DATE: 20190429
